FAERS Safety Report 8195917-9 (Version None)
Quarter: 2012Q1

REPORT INFORMATION
  Report Type: 
  Country: None (occurrence: None)
  Receive Date: 20120308
  Receipt Date: 20120224
  Transmission Date: 20120608
  Serious: Yes (Other)
  Sender: FDA-Public Use
  Company Number: IT-MYLANLABS-2012S1004127

PATIENT
  Age: 53 Year
  Sex: Female

DRUGS (5)
  1. OXYCONTIN [Concomitant]
     Indication: PRODUCT USED FOR UNKNOWN INDICATION
     Dosage: 28 PROLONGED RELEASE TABLETS
  2. PACLITAXEL [Suspect]
     Indication: ENDOMETRIAL NEOPLASM
     Route: 042
     Dates: start: 20120224, end: 20120224
  3. SODIUM FERRIC GLUCONATE COMPLEX [Concomitant]
     Indication: PRODUCT USED FOR UNKNOWN INDICATION
     Dosage: 62.5 MG/ 5ML ORAL SOLUTION AND IV USE 5 AMPOULES 5 ML
  4. LANSOPRAZOLE [Concomitant]
     Indication: PRODUCT USED FOR UNKNOWN INDICATION
  5. TRANEX [Concomitant]
     Indication: PRODUCT USED FOR UNKNOWN INDICATION
     Dosage: 500 MG/ 5 ML INJECTION SOLUTION 6 AMPOULES 5 ML

REACTIONS (2)
  - CHOKING SENSATION [None]
  - DYSPNOEA [None]
